FAERS Safety Report 7218370-8 (Version None)
Quarter: 2011Q1

REPORT INFORMATION
  Report Type: 
  Country: None (occurrence: None)
  Receive Date: 20110110
  Receipt Date: 20110103
  Transmission Date: 20110831
  Serious: Yes (Hospitalization)
  Sender: FDA-Public Use
  Company Number: BR-ABBOTT-11P-020-0694967-00

PATIENT
  Age: 16 Year
  Sex: Male
  Weight: 63 kg

DRUGS (4)
  1. DEPAKOTE [Suspect]
     Indication: DEPRESSION
     Dosage: DAILY DOSE: 75MG
  2. EXODUS [Interacting]
     Indication: DEPRESSION
     Dosage: DAILY DOSE: 20MG
  3. ROACUTAN [Interacting]
     Indication: ACNE
     Dosage: DAILY DOSE: 20MG
     Dates: start: 20100525
  4. SEROQUEL [Interacting]
     Indication: DEPRESSION
     Dosage: DAILY DOSE: 25MG

REACTIONS (5)
  - DIET REFUSAL [None]
  - DECREASED APPETITE [None]
  - MALAISE [None]
  - HYPOGLYCAEMIA [None]
  - DRUG INTERACTION [None]
